FAERS Safety Report 23094177 (Version 1)
Quarter: 2023Q4

REPORT INFORMATION
  Report Type: Report from Study
  Country: US (occurrence: US)
  Receive Date: 20231023
  Receipt Date: 20231023
  Transmission Date: 20240109
  Serious: Yes (Other)
  Sender: FDA-Public Use
  Company Number: US-ABBVIE-5186033

PATIENT
  Age: 67 Year
  Sex: Female

DRUGS (2)
  1. RINVOQ [Suspect]
     Active Substance: UPADACITINIB
     Indication: Rheumatoid arthritis
     Dosage: FORM STRENGTH: 15 MILLIGRAM
     Route: 048
     Dates: start: 20221118
  2. RINVOQ [Suspect]
     Active Substance: UPADACITINIB
     Indication: Rheumatoid arthritis
     Dosage: FORM STRENGTH: 15 MILLIGRAM
     Route: 048

REACTIONS (6)
  - Middle ear effusion [Recovering/Resolving]
  - Ear discomfort [Unknown]
  - Ear pain [Unknown]
  - Influenza [Recovered/Resolved]
  - Sciatica [Recovered/Resolved]
  - Hypoacusis [Recovering/Resolving]

NARRATIVE: CASE EVENT DATE: 20230201
